FAERS Safety Report 7559453-2 (Version None)
Quarter: 2011Q2

REPORT INFORMATION
  Report Type: 
  Country: None (occurrence: None)
  Receive Date: 20110617
  Receipt Date: 20110617
  Transmission Date: 20111010
  Serious: Yes (Hospitalization)
  Sender: FDA-Public Use
  Company Number: None

PATIENT
  Age: 63 Year
  Sex: Male
  Weight: 114 kg

DRUGS (2)
  1. ENOXAPARIN [Suspect]
     Indication: ATRIAL FIBRILLATION
     Dosage: 110MG BID SQ
     Route: 058
     Dates: start: 20100417, end: 20100502
  2. WARFARIN SODIUM [Suspect]
     Indication: ATRIAL FIBRILLATION
     Dosage: 5MG EVERY DAY PO
     Route: 048
     Dates: start: 20090320, end: 20100505

REACTIONS (7)
  - HAEMATOMA [None]
  - OEDEMA [None]
  - FLUID OVERLOAD [None]
  - ATRIAL FIBRILLATION [None]
  - PAIN IN EXTREMITY [None]
  - HAEMORRHAGE [None]
  - RHABDOMYOLYSIS [None]
